FAERS Safety Report 5454957-0 (Version None)
Quarter: 2007Q3

REPORT INFORMATION
  Report Type: 
  Country: None (occurrence: None)
  Receive Date: 20070917
  Receipt Date: 20070905
  Transmission Date: 20080115
  Serious: Yes (Hospitalization)
  Sender: FDA-Public Use
  Company Number: AU-PFIZER INC-2006110603

PATIENT
  Sex: Male
  Weight: 89.6 kg

DRUGS (20)
  1. SUTENT [Suspect]
     Indication: METASTATIC RENAL CELL CARCINOMA
     Route: 048
     Dates: start: 20060816, end: 20060906
  2. SUTENT [Suspect]
     Indication: RENAL CELL CARCINOMA STAGE UNSPECIFIED
  3. PANTOPRAZOLE SODIUM [Concomitant]
     Route: 048
  4. METOCLOPRAMIDE [Concomitant]
     Route: 048
     Dates: start: 20060725
  5. LIPITOR [Concomitant]
     Route: 048
     Dates: end: 20060906
  6. PARACETAMOL [Concomitant]
     Route: 048
     Dates: start: 20060830
  7. TEMAZEPAM [Concomitant]
     Route: 048
     Dates: start: 20060917
  8. OXYNORM [Concomitant]
     Route: 048
     Dates: start: 20060909
  9. OXYCONTIN [Concomitant]
     Route: 048
     Dates: start: 20060914
  10. TEMAZEPAM [Concomitant]
     Route: 048
     Dates: start: 20060911, end: 20060917
  11. LORAZEPAM [Concomitant]
     Route: 048
     Dates: start: 20060911, end: 20060927
  12. GASTRO GEL [Concomitant]
     Route: 048
     Dates: start: 20060910, end: 20060912
  13. MOVICOL [Concomitant]
     Route: 048
     Dates: start: 20060917, end: 20060917
  14. COLOXYL WITH SENNA [Concomitant]
     Route: 048
     Dates: start: 20060909, end: 20060917
  15. LACTULOSE [Concomitant]
     Route: 048
     Dates: start: 20060914, end: 20060917
  16. FRUSEMIDE [Concomitant]
     Route: 042
     Dates: start: 20060915, end: 20060915
  17. TROPISETRON [Concomitant]
     Route: 042
     Dates: start: 20060914, end: 20060914
  18. MICROLAX [Concomitant]
     Route: 054
     Dates: start: 20060914, end: 20060914
  19. SODIUM PHOSPHATES [Concomitant]
     Route: 054
     Dates: start: 20060914, end: 20060914
  20. ACYCLOVIR [Concomitant]
     Route: 048
     Dates: start: 20060927, end: 20061007

REACTIONS (1)
  - NEPHRITIS INTERSTITIAL [None]
